FAERS Safety Report 20370959 (Version 1)
Quarter: 2022Q1

REPORT INFORMATION
  Report Type: Report from Study
  Country: TR (occurrence: None)
  Receive Date: 20220124
  Receipt Date: 20220124
  Transmission Date: 20220424
  Serious: Yes (Hospitalization, Other)
  Sender: FDA-Public Use
  Company Number: 2021A890024

PATIENT
  Age: 28229 Day
  Sex: Female

DRUGS (14)
  1. DURVALUMAB [Suspect]
     Active Substance: DURVALUMAB
     Indication: Gastric cancer
     Route: 042
     Dates: start: 20211126, end: 20211126
  2. FLUOROURACIL [Suspect]
     Active Substance: FLUOROURACIL
     Indication: Gastric cancer
     Dosage: 2600 MG/M2 ( 85 MG/M2 ON DAYS 1 AND 15 EVERY FOUR WEEKS )
     Route: 042
     Dates: start: 20211126, end: 20211127
  3. FLUOROURACIL [Suspect]
     Active Substance: FLUOROURACIL
     Indication: Gastric cancer
     Dosage: 85.0 MG/M2 ( 85 MG/M2 ON DAYS 1 AND 15 EVERY FOUR WEEKS )
     Route: 042
     Dates: start: 20211214, end: 20211215
  4. OXALIPLATIN [Suspect]
     Active Substance: OXALIPLATIN
     Indication: Gastric cancer
     Dosage: 85.0 MG/M2 ( 85 MG/M2 ON DAYS 1 AND 15 EVERY FOUR WEEKS )
     Route: 042
     Dates: start: 20211126, end: 20211126
  5. OXALIPLATIN [Suspect]
     Active Substance: OXALIPLATIN
     Indication: Gastric cancer
     Dosage: 85.0 MG/M2 ( 85 MG/M2 ON DAYS 1 AND 15 EVERY FOUR WEEKS )
     Route: 042
     Dates: start: 20211214, end: 20211214
  6. LEUCOVORIN [Suspect]
     Active Substance: LEUCOVORIN
     Indication: Gastric cancer
     Dosage: 200.0 MG/M2 ( 200 MG/M2 ON DAYS 1 AND 15 EVERY FOUR WEEKS )
     Route: 042
     Dates: start: 20211126, end: 20211126
  7. LEUCOVORIN [Suspect]
     Active Substance: LEUCOVORIN
     Indication: Gastric cancer
     Dosage: 200.0 MG/M2 ( 200 MG/M2 ON DAYS 1 AND 15 EVERY FOUR WEEKS )
     Route: 042
     Dates: start: 20211214, end: 20211214
  8. DOCETAXEL [Suspect]
     Active Substance: DOCETAXEL
     Indication: Gastric cancer
     Dosage: 50.0 MG/M2 ( 50 MG/M2 ON DAYS 1 AND 15 EVERY FOUR WEEKS )
     Route: 042
     Dates: start: 20211214, end: 20211214
  9. DOCETAXEL [Suspect]
     Active Substance: DOCETAXEL
     Indication: Gastric cancer
     Dosage: 50.0 MG/M2 ( 50 MG/M2 ON DAYS 1 AND 15 EVERY FOUR WEEKS )
     Route: 042
     Dates: start: 20211126, end: 20211126
  10. GRANISETRON [Concomitant]
     Active Substance: GRANISETRON
     Indication: Prophylaxis
     Dosage: 3.0 MG EVERY 2 WEEKS
     Route: 042
     Dates: start: 20211126
  11. DEXAMETHASONE [Concomitant]
     Active Substance: DEXAMETHASONE
     Indication: Hypersensitivity
     Dosage: 8.0 MG EVERY 2 WEEKS
     Route: 042
     Dates: start: 20211126
  12. PHENIRAMINE MALEATE [Concomitant]
     Active Substance: PHENIRAMINE MALEATE
     Indication: Prophylaxis
     Dosage: 45.5 MG EVERY 2 WEEKS
     Route: 042
     Dates: start: 20211126
  13. RANITIDINE [Concomitant]
     Active Substance: RANITIDINE
     Indication: Prophylaxis
     Dosage: 50 MG EVERY 2 WEEKS
     Route: 042
     Dates: start: 20211126
  14. NON-GLYCOSYLATED RECOMBINANT METHIONYL HUMAN [Concomitant]
     Indication: Neutropenia
     Dosage: 0.5 ML DAILY
     Route: 058
     Dates: start: 20211209, end: 20211212

REACTIONS (2)
  - Vomiting [Recovered/Resolved]
  - Obstruction [Recovering/Resolving]

NARRATIVE: CASE EVENT DATE: 20211215
